FAERS Safety Report 10541100 (Version 2)
Quarter: 2014Q4

REPORT INFORMATION
  Report Type: Spontaneous
  Country: US (occurrence: US)
  Receive Date: 20141024
  Receipt Date: 20141024
  Transmission Date: 20150529
  Serious: Yes (Other)
  Sender: FDA-Public Use
  Company Number: US-BAYER-2014-132347

PATIENT
  Age: 53 Year
  Sex: Male
  Weight: 122.45 kg

DRUGS (5)
  1. BAYER GENUINE ASPIRIN [Suspect]
     Active Substance: ASPIRIN
     Indication: ANGIOPATHY
     Dosage: 6500 MG, ONCE
  2. BAYER LOW DOSE [Suspect]
     Active Substance: ASPIRIN
     Indication: ANGIOPATHY
  3. BAYER LOW DOSE [Suspect]
     Active Substance: ASPIRIN
     Indication: UNEVALUABLE EVENT
     Dosage: UNK
     Dates: end: 201407
  4. BAYER GENUINE ASPIRIN [Suspect]
     Active Substance: ASPIRIN
     Indication: UNEVALUABLE EVENT
     Dosage: UNK
     Dates: end: 201407
  5. CAFFEINE. [Concomitant]
     Active Substance: CAFFEINE

REACTIONS (7)
  - Drug ineffective [None]
  - Swelling [Unknown]
  - Incorrect drug administration duration [None]
  - Medication error [Unknown]
  - Dyspnoea [Unknown]
  - Haematochezia [Recovered/Resolved]
  - Overdose [Unknown]

NARRATIVE: CASE EVENT DATE: 2014
